FAERS Safety Report 19788251 (Version 2)
Quarter: 2021Q3

REPORT INFORMATION
  Report Type: Spontaneous
  Country: US (occurrence: US)
  Receive Date: 20210903
  Receipt Date: 20210906
  Transmission Date: 20211014
  Serious: No
  Sender: FDA-Public Use
  Company Number: US-ALXN-A202109792

PATIENT
  Sex: Male

DRUGS (1)
  1. STRENSIQ [Suspect]
     Active Substance: ASFOTASE ALFA
     Indication: HYPOPHOSPHATASIA
     Dosage: UNK
     Route: 065

REACTIONS (4)
  - Injection site atrophy [Not Recovered/Not Resolved]
  - Injection site haemorrhage [Unknown]
  - Injection site pain [Unknown]
  - Skin atrophy [Unknown]
